FAERS Safety Report 9705343 (Version 2)
Quarter: 2014Q1

REPORT INFORMATION
  Report Type: Report from Study
  Country: US (occurrence: US)
  Receive Date: 20131122
  Receipt Date: 20140117
  Transmission Date: 20141002
  Serious: Yes (Other)
  Sender: FDA-Public Use
  Company Number: US-PURDUE-USA-2013-0108818

PATIENT
  Age: 49 Year
  Sex: Male

DRUGS (3)
  1. BTDS PATCH [Suspect]
     Indication: PRODUCT USED FOR UNKNOWN INDICATION
     Dosage: UNK
     Route: 062
     Dates: start: 201302
  2. BTDS PATCH [Suspect]
     Dosage: 20 MCG/HR, WEEKLY
     Route: 062
     Dates: start: 20131106
  3. TOBACCO [Suspect]
     Indication: DRUG ABUSE
     Dosage: UNKNOWN

REACTIONS (5)
  - Pulmonary mass [Not Recovered/Not Resolved]
  - Hepatic steatosis [Unknown]
  - Pulmonary fibrosis [Unknown]
  - Tobacco abuse [Unknown]
  - Bronchitis chronic [Unknown]
